FAERS Safety Report 8483469 (Version 3)
Quarter: 2013Q3

REPORT INFORMATION
  Report Type: Report from Study
  Country: NL (occurrence: NL)
  Receive Date: 20120329
  Receipt Date: 20130930
  Transmission Date: 20140515
  Serious: Yes (Hospitalization)
  Sender: FDA-Public Use
  Company Number: NL-MEDIMMUNE-MEDI-0014998

PATIENT
  Age: 1 Year
  Sex: Male
  Weight: 8.4 kg

DRUGS (5)
  1. SYNAGIS [Suspect]
     Indication: PREMATURE BABY
     Route: 030
     Dates: start: 20110902, end: 20110902
  2. SYNAGIS [Suspect]
     Indication: PREMATURE BABY
     Route: 030
     Dates: start: 20120118, end: 20120118
  3. SYNAGIS [Suspect]
     Indication: PREMATURE BABY
     Route: 030
     Dates: start: 20120215, end: 20120411
  4. SYNAGIS [Suspect]
     Indication: PREMATURE BABY
     Route: 030
     Dates: start: 20120411, end: 20120411
  5. SALBUTAMOL [Concomitant]

REACTIONS (6)
  - Respiratory tract infection [Recovered/Resolved]
  - Dyspnoea [Recovered/Resolved]
  - Breath sounds abnormal [Recovered/Resolved]
  - Rhinorrhoea [Unknown]
  - Rales [Not Recovered/Not Resolved]
  - Wheezing [Not Recovered/Not Resolved]
